FAERS Safety Report 9687337 (Version 3)
Quarter: 2013Q4

REPORT INFORMATION
  Report Type: Spontaneous
  Country: US (occurrence: US)
  Receive Date: 20131114
  Receipt Date: 20131231
  Transmission Date: 20140711
  Serious: Yes (Death)
  Sender: FDA-Public Use
  Company Number: US-BIOGENIDEC-2013BI107589

PATIENT
  Age: 64 Year
  Sex: Female

DRUGS (1)
  1. AVONEX [Suspect]
     Indication: MULTIPLE SCLEROSIS
     Route: 030
     Dates: start: 20001220

REACTIONS (6)
  - Myocardial infarction [Fatal]
  - Cardiac disorder [Unknown]
  - General symptom [Unknown]
  - Lung disorder [Unknown]
  - Memory impairment [Unknown]
  - Gastrointestinal disorder [Unknown]
